FAERS Safety Report 25266285 (Version 1)
Quarter: 2025Q2

REPORT INFORMATION
  Report Type: Spontaneous
  Country: DE (occurrence: DE)
  Receive Date: 20250504
  Receipt Date: 20250504
  Transmission Date: 20250716
  Serious: Yes (Other)
  Sender: SANDOZ
  Company Number: DE-002147023-NVSC2019DE047477

PATIENT
  Sex: Female
  Weight: 64 kg

DRUGS (4)
  1. FULVESTRANT [Suspect]
     Active Substance: FULVESTRANT
     Indication: Breast cancer metastatic
     Dosage: 500 MG, QD (EVERY 3 WEEKS)
     Route: 058
     Dates: start: 20190808
  2. KISQALI [Suspect]
     Active Substance: RIBOCICLIB SUCCINATE
     Dosage: 200 MG, QD (21 DAYS INTAKE, 7 DAYS PAUSE)UNK
     Route: 048
     Dates: start: 20190912, end: 20191204
  3. KISQALI [Suspect]
     Active Substance: RIBOCICLIB SUCCINATE
     Indication: Breast cancer metastatic
     Dosage: 400 MG, QD (21 DAYS INTAKE, 7 DAYS PAUSE)
     Route: 048
     Dates: start: 20190808, end: 20190905
  4. KISQALI [Suspect]
     Active Substance: RIBOCICLIB SUCCINATE
     Dosage: 400 MG, QD (21 DAYS INTAKE, 7 DAYS PAUSE)
     Route: 048
     Dates: start: 20191205

REACTIONS (4)
  - Thrombocytopenia [Recovered/Resolved]
  - Leukopenia [Recovered/Resolved]
  - Thrombocytopenia [Recovered/Resolved]
  - Off label use [Unknown]

NARRATIVE: CASE EVENT DATE: 20190822
